FAERS Safety Report 6292603-7 (Version None)
Quarter: 2009Q3

REPORT INFORMATION
  Report Type: 
  Country: None (occurrence: None)
  Receive Date: 20090731
  Receipt Date: 20090723
  Transmission Date: 20100115
  Serious: Yes (Hospitalization)
  Sender: FDA-Public Use
  Company Number: JP-JNJCH-2009020446

PATIENT
  Age: 38 Year
  Sex: Male

DRUGS (4)
  1. CETIRIZINE HYDROCHLORIDE [Suspect]
     Indication: RASH
     Dosage: TEXT:10 MG
     Route: 048
     Dates: start: 20090721, end: 20090722
  2. CEFCAPENE PIVOXIL HYDROCHLORIDE [Concomitant]
     Dosage: TEXT:UNK
     Route: 048
  3. PARACETAMOL [Concomitant]
     Dosage: TEXT:UNK
     Route: 065
  4. PL [Concomitant]
     Dosage: TEXT:UNK
     Route: 048

REACTIONS (1)
  - RASH [None]
